FAERS Safety Report 5357588-6 (Version None)
Quarter: 2007Q2

REPORT INFORMATION
  Report Type: 
  Country: None (occurrence: None)
  Receive Date: 20070614
  Receipt Date: 20070604
  Transmission Date: 20071010
  Serious: Yes (Hospitalization)
  Sender: FDA-Public Use
  Company Number: US-ELI_LILLY_AND_COMPANY-US200705000246

PATIENT
  Age: 73 Year
  Sex: Male

DRUGS (18)
  1. BYETTA [Suspect]
     Indication: DIABETES MELLITUS NON-INSULIN-DEPENDENT
     Dosage: 5 UG, 2/D
     Route: 058
     Dates: start: 20070101, end: 20070101
  2. BYETTA [Suspect]
     Dosage: 10 UG, 2/D
     Route: 058
     Dates: start: 20070101
  3. GLIPIZIDE [Concomitant]
     Indication: DIABETES MELLITUS NON-INSULIN-DEPENDENT
     Dosage: 10 MG, 2/D
     Route: 048
     Dates: start: 20010101
  4. LANTUS [Concomitant]
     Indication: DIABETES MELLITUS NON-INSULIN-DEPENDENT
     Dosage: 20 U, EACH EVENING
     Route: 058
     Dates: start: 20070101
  5. DIGOXIN [Concomitant]
     Indication: ARRHYTHMIA
     Dosage: 0.25 MG, DAILY (1/D)
     Route: 048
     Dates: start: 19970101
  6. DIGOXIN [Concomitant]
     Dosage: 0.125 MG, DAILY (1/D)
     Route: 048
  7. ZOCOR [Concomitant]
     Indication: BLOOD CHOLESTEROL
     Dosage: 20 MG, DAILY (1/D)
     Route: 048
  8. COUMADIN [Concomitant]
     Indication: ARRHYTHMIA
     Dosage: 2.5 MG, 3/W
     Route: 048
     Dates: start: 19970101
  9. COUMADIN [Concomitant]
     Dosage: 5 MG, 4/W
     Route: 048
     Dates: start: 19970101
  10. VASOTEC [Concomitant]
     Indication: BLOOD PRESSURE
     Dosage: 10 MG, 2/D
     Route: 048
     Dates: start: 20010101
  11. ASPIRIN [Concomitant]
     Indication: CARDIAC DISORDER
     Dosage: 81 MG, DAILY (1/D)
     Route: 048
  12. LASIX [Concomitant]
     Indication: FLUID RETENTION
     Dosage: 40 MG, 2/D
     Route: 048
  13. FLOMAX [Concomitant]
     Indication: URINARY TRACT DISORDER
     Dosage: 0.4 MG, DAILY (1/D)
     Route: 048
     Dates: start: 20070401
  14. METOPROLOL SUCCINATE [Concomitant]
     Indication: BLOOD PRESSURE ABNORMAL
     Dosage: 50 MG, 2/D
     Route: 048
  15. METOPROLOL SUCCINATE [Concomitant]
     Dosage: 25 MG, 2/D
  16. LEVOTHYROXINE SODIUM [Concomitant]
     Indication: HYPOTHYROIDISM
     Dosage: 25 MCG, DAILY (1/D)
     Route: 048
  17. THEOPHYLLINE [Concomitant]
     Indication: RESPIRATORY DISORDER
     Dosage: 400 MG, DAILY (1/D)
     Route: 048
  18. DILTIAZEM [Concomitant]
     Indication: CARDIAC DISORDER
     Dosage: 240 MG, DAILY (1/D)

REACTIONS (6)
  - ANAEMIA [None]
  - CARDIAC DISORDER [None]
  - CHEST PAIN [None]
  - CONSTIPATION [None]
  - DRUG INEFFECTIVE [None]
  - DYSPNOEA [None]
